FAERS Safety Report 7350697-1 (Version None)
Quarter: 2011Q1

REPORT INFORMATION
  Report Type: 
  Country: None (occurrence: None)
  Receive Date: 20110314
  Receipt Date: 20110303
  Transmission Date: 20110831
  Serious: Yes (Other)
  Sender: FDA-Public Use
  Company Number: US-JNJFOC-20110302556

PATIENT
  Age: 46 Year
  Sex: Female
  Weight: 72.58 kg

DRUGS (2)
  1. MONISTAT 3 VAGINAL CRM IN PFILLED APPLS [Suspect]
     Route: 067
  2. MONISTAT 3 VAGINAL CRM IN PFILLED APPLS [Suspect]
     Indication: FUNGAL INFECTION
     Dosage: 4% STRENGTH
     Route: 067

REACTIONS (5)
  - THROAT IRRITATION [None]
  - VULVOVAGINAL SWELLING [None]
  - URTICARIA [None]
  - VULVOVAGINAL BURNING SENSATION [None]
  - DYSPNOEA [None]
